FAERS Safety Report 6692791-4 (Version None)
Quarter: 2010Q2

REPORT INFORMATION
  Report Type: 
  Country: None (occurrence: None)
  Receive Date: 20100422
  Receipt Date: 20100413
  Transmission Date: 20101027
  Serious: Yes (Hospitalization)
  Sender: FDA-Public Use
  Company Number: US-MILLENNIUM PHARMACEUTICALS, INC.-2010-02134

PATIENT
  Sex: Male
  Weight: 61.3 kg

DRUGS (2)
  1. VELCADE [Suspect]
     Indication: DIFFUSE LARGE B-CELL LYMPHOMA
     Dosage: 1.6 MG/M2, CYCLIC
     Dates: start: 20100330
  2. GEMCITABINE HCL [Suspect]
     Indication: DIFFUSE LARGE B-CELL LYMPHOMA
     Dosage: 800 MG/M2, CYCLIC
     Dates: start: 20100330

REACTIONS (5)
  - ABDOMINAL DISTENSION [None]
  - DYSPNOEA [None]
  - FATIGUE [None]
  - HYPONATRAEMIA [None]
  - HYPOPHAGIA [None]
